FAERS Safety Report 7658366-5 (Version None)
Quarter: 2011Q3

REPORT INFORMATION
  Report Type: 
  Country: None (occurrence: None)
  Receive Date: 20110805
  Receipt Date: 20110727
  Transmission Date: 20111222
  Serious: Yes (Other)
  Sender: FDA-Public Use
  Company Number: US-JNJFOC-20110801835

PATIENT
  Sex: Female
  Weight: 97.98 kg

DRUGS (1)
  1. ELMIRON [Suspect]
     Indication: CYSTITIS INTERSTITIAL
     Route: 048

REACTIONS (4)
  - HYPOACUSIS [None]
  - ALOPECIA [None]
  - OSTEOPOROSIS [None]
  - BODY HEIGHT DECREASED [None]
